FAERS Safety Report 10407109 (Version 3)
Quarter: 2015Q1

REPORT INFORMATION
  Report Type: Spontaneous
  Country: US (occurrence: US)
  Receive Date: 20140825
  Receipt Date: 20150318
  Transmission Date: 20150720
  Serious: Yes (Hospitalization, Other)
  Sender: FDA-Public Use
  Company Number: US-GLAXOSMITHKLINE-A1085323A

PATIENT
  Age: 59 Year
  Sex: Male

DRUGS (16)
  1. VENTOLIN [Suspect]
     Active Substance: ALBUTEROL SULFATE
     Indication: CHRONIC OBSTRUCTIVE PULMONARY DISEASE
     Dosage: 2 PUFF(S), BID
     Route: 055
     Dates: start: 201208
  2. VENTOLIN [Suspect]
     Active Substance: ALBUTEROL SULFATE
     Indication: EMPHYSEMA
  3. ATENOLOL. [Concomitant]
     Active Substance: ATENOLOL
  4. OXYCODONE [Concomitant]
     Active Substance: OXYCODONE
  5. QUETIAPINE [Concomitant]
     Active Substance: QUETIAPINE
  6. ADVAIR HFA [Suspect]
     Active Substance: FLUTICASONE PROPIONATE\SALMETEROL XINAFOATE
     Indication: EMPHYSEMA
  7. ZOLOFT [Concomitant]
     Active Substance: SERTRALINE HYDROCHLORIDE
  8. SEROQUEL [Concomitant]
     Active Substance: QUETIAPINE FUMARATE
  9. VALIUM [Concomitant]
     Active Substance: DIAZEPAM
  10. PROTONIX [Concomitant]
     Active Substance: PANTOPRAZOLE SODIUM
  11. SIMVASTATIN. [Concomitant]
     Active Substance: SIMVASTATIN
  12. CARBAMAZEPINE. [Concomitant]
     Active Substance: CARBAMAZEPINE
  13. MORPHINE [Concomitant]
     Active Substance: MORPHINE
  14. FLOMAX [Concomitant]
     Active Substance: TAMSULOSIN HYDROCHLORIDE
  15. KLONOPIN [Concomitant]
     Active Substance: CLONAZEPAM
  16. ADVAIR HFA [Suspect]
     Active Substance: FLUTICASONE PROPIONATE\SALMETEROL XINAFOATE
     Indication: CHRONIC OBSTRUCTIVE PULMONARY DISEASE
     Dosage: 1 PUFF(S), BID
     Route: 055
     Dates: start: 1999

REACTIONS (12)
  - Nasopharyngitis [Not Recovered/Not Resolved]
  - Pain [Not Recovered/Not Resolved]
  - Bladder cancer stage II [Recovering/Resolving]
  - Treatment noncompliance [Recovered/Resolved]
  - Back pain [Not Recovered/Not Resolved]
  - Pulmonary oedema [Not Recovered/Not Resolved]
  - Bladder neoplasm surgery [Recovering/Resolving]
  - Cough [Not Recovered/Not Resolved]
  - Hypoaesthesia [Not Recovered/Not Resolved]
  - Malaise [Not Recovered/Not Resolved]
  - Pneumonia [Not Recovered/Not Resolved]
  - Angina pectoris [Not Recovered/Not Resolved]

NARRATIVE: CASE EVENT DATE: 201302
